FAERS Safety Report 9060472 (Version 1)
Quarter: 2013Q1

REPORT INFORMATION
  Report Type: Spontaneous
  Country: DE (occurrence: DE)
  Receive Date: 20130212
  Receipt Date: 20130212
  Transmission Date: 20140127
  Serious: Yes (Other)
  Sender: FDA-Public Use
  Company Number: PHHY2013DE011889

PATIENT
  Sex: Male

DRUGS (7)
  1. METOPROLOL [Suspect]
     Dosage: UNK UKN, UNK
     Route: 064
  2. OLMESARTAN [Suspect]
     Dosage: 40 MG, PER DAY
     Route: 064
  3. ENALAPRIL [Suspect]
     Dosage: UNK UKN, UNK
     Route: 064
  4. LERCANIDIPINE [Suspect]
     Dosage: UNK UKN, UNK
     Route: 064
  5. NIFEDIPINE [Suspect]
     Dosage: UNK UKN, UNK
     Route: 064
  6. METHYLDOPA [Suspect]
     Dosage: UNK UKN, UNK
     Route: 064
  7. ANTIVIRALS NOS [Suspect]
     Indication: HIV INFECTION
     Dosage: UNK UKN, UNK
     Route: 064

REACTIONS (5)
  - Congenital hearing disorder [Unknown]
  - Congenital choroid plexus cyst [Unknown]
  - Kidney duplex [Unknown]
  - Supernumerary nipple [Unknown]
  - Foetal exposure during pregnancy [Unknown]
